FAERS Safety Report 22147226 (Version 1)
Quarter: 2023Q1

REPORT INFORMATION
  Report Type: Spontaneous
  Country: US (occurrence: None)
  Receive Date: 20230327
  Receipt Date: 20230327
  Transmission Date: 20230418
  Serious: Yes (Hospitalization, Disabling)
  Sender: FDA-Public Use
  Company Number: None

PATIENT
  Sex: Female
  Weight: 81.65 kg

DRUGS (19)
  1. SOLIFENACIN [Suspect]
     Active Substance: SOLIFENACIN
     Indication: Urinary incontinence
     Dosage: FREQUENCY : DAILY; 1 TABLET?
     Route: 048
     Dates: start: 20220914, end: 20220917
  2. ACETAMINOOPHEN [Concomitant]
     Dosage: OTHER FREQUENCY : EVERY 8 HOURS;?
     Route: 048
  3. AMLODIPINE [Concomitant]
     Active Substance: AMLODIPINE BESYLATE
     Dosage: FREQUENCY : DAILY;?
     Route: 048
  4. ASPIRIN [Concomitant]
     Active Substance: ASPIRIN
     Dosage: FREQUENCY : DAILY;?
     Route: 048
  5. ASPIRIN [Concomitant]
     Active Substance: ASPIRIN
  6. CHOLECALCIFEROL [Suspect]
     Active Substance: CHOLECALCIFEROL
     Dosage: FREQUENCY : DAILY;?
     Route: 048
  7. LINZESS [Suspect]
     Active Substance: LINACLOTIDE
     Dosage: FREQUENCY : DAILY;?
  8. METFORMIN [Suspect]
     Active Substance: METFORMIN HYDROCHLORIDE
     Dosage: FREQUENCY : TWICE A DAY;?
     Route: 048
  9. METOPROLOL [Concomitant]
     Dosage: FREQUENCY : DAILY;?
     Route: 048
  10. NERVIVE [Concomitant]
     Dosage: OTHER FREQUENCY : BEDTIME;?
     Route: 048
  11. OMEPRAZOLE [Concomitant]
     Active Substance: OMEPRAZOLE
     Dosage: FREQUENCY : DAILY;?
     Route: 048
  12. PRAVASTATIN [Concomitant]
     Active Substance: PRAVASTATIN
     Dosage: OTHER FREQUENCY : BEDTIME;?
     Route: 048
  13. REGULOID [Concomitant]
     Active Substance: PSYLLIUM HUSK
     Dosage: FREQUENCY : TWICE A DAY;?
  14. THERAPEUTIC-M [Concomitant]
     Dosage: FREQUENCY : DAILY;?
  15. TYLENOL EXTRA STRENGTH [Concomitant]
     Active Substance: ACETAMINOPHEN
     Dosage: FREQUENCY : DAILY;?
     Route: 048
  16. ACETAMINOPHEIN [Concomitant]
     Dosage: FREQUENCY : EVERY 6 HOURS;?
     Route: 048
  17. ALBUTEROL SULFATE [Concomitant]
     Active Substance: ALBUTEROL SULFATE
     Dosage: OTHER FREQUENCY : EVERY2HOURS;?
  18. ALBUTEROL SULFATE [Concomitant]
     Dosage: OTHER FREQUENCY : EVERY 2 HOURS;?
  19. ANUSOL-HC [Concomitant]
     Active Substance: HYDROCORTISONE
     Dosage: OTHER FREQUENCY : BEDTIME ;?
     Route: 061

REACTIONS (1)
  - Limb discomfort [None]
